FAERS Safety Report 23471635 (Version 1)
Quarter: 2024Q1

REPORT INFORMATION
  Report Type: Spontaneous
  Country: CZ (occurrence: CZ)
  Receive Date: 20240202
  Receipt Date: 20240202
  Transmission Date: 20240409
  Serious: Yes (Disabling, Other)
  Sender: FDA-Public Use
  Company Number: CZ-EMA-DD-20231017-225465-043314

PATIENT
  Sex: Male

DRUGS (3)
  1. DOCETAXEL [Suspect]
     Active Substance: DOCETAXEL\DOCETAXEL ANHYDROUS
     Indication: Metastases to bone
     Dosage: THREE WEEKS REGIMEN
     Route: 065
     Dates: start: 201301
  2. DOCETAXEL [Suspect]
     Active Substance: DOCETAXEL\DOCETAXEL ANHYDROUS
     Indication: Prostate cancer
  3. ZOLEDRONIC ACID [Suspect]
     Active Substance: ZOLEDRONIC ACID
     Indication: Non-Hodgkin^s lymphoma
     Route: 065
     Dates: start: 201301

REACTIONS (2)
  - Cholecystitis [Recovered/Resolved]
  - Prostatic specific antigen increased [Recovered/Resolved]
